FAERS Safety Report 10797920 (Version 1)
Quarter: 2015Q1

REPORT INFORMATION
  Report Type: Report from Study
  Country: US (occurrence: US)
  Receive Date: 20150216
  Receipt Date: 20150216
  Transmission Date: 20150721
  Serious: No
  Sender: FDA-Public Use
  Company Number: US-ABBVIE-14K-163-1233586-00

PATIENT
  Age: 44 Year
  Sex: Female

DRUGS (11)
  1. VISTARIL [Concomitant]
     Active Substance: HYDROXYZINE PAMOATE
     Indication: ANXIETY
     Dosage: 1-2 TABLETS TID, USUALLY TAKE 2 AT NIGHT
  2. TRAMADOL [Concomitant]
     Active Substance: TRAMADOL
     Indication: PAIN
     Dosage: THREE TIMES IN A DAY
  3. CRANBERRY. [Concomitant]
     Active Substance: CRANBERRY
     Indication: CYSTITIS
  4. AIRBORNE [Suspect]
     Active Substance: HERBALS\MINERALS\VITAMINS
     Indication: INFECTION
  5. TRAZODONE [Concomitant]
     Active Substance: TRAZODONE HYDROCHLORIDE
     Indication: INSOMNIA
     Dosage: AT NIGHT
  6. CYMBALTA [Concomitant]
     Active Substance: DULOXETINE HYDROCHLORIDE
     Indication: PAIN
  7. CRANBERRY. [Concomitant]
     Active Substance: CRANBERRY
     Indication: PROPHYLAXIS
     Dosage: PILL ONE SOFTGEL
  8. HUMIRA [Suspect]
     Active Substance: ADALIMUMAB
     Indication: RHEUMATOID ARTHRITIS
     Dates: start: 201403
  9. HYDROCODONE [Suspect]
     Active Substance: HYDROCODONE
     Indication: PAIN
     Dosage: 5/325 ONE TABLET EVERY FOUR TO SIX HOURS
     Dates: start: 201404
  10. VISTARIL [Concomitant]
     Active Substance: HYDROXYZINE PAMOATE
     Indication: INSOMNIA
  11. PREDNISONE. [Concomitant]
     Active Substance: PREDNISONE
     Indication: INFLAMMATION

REACTIONS (21)
  - Trigeminal neuralgia [Unknown]
  - Inappropriate schedule of drug administration [Unknown]
  - Arthralgia [Recovering/Resolving]
  - Hypoaesthesia oral [Unknown]
  - Pyrexia [Unknown]
  - Injection site pain [Not Recovered/Not Resolved]
  - Paraesthesia oral [Unknown]
  - Pain in jaw [Unknown]
  - Toothache [Not Recovered/Not Resolved]
  - Oedema [Unknown]
  - Drug effect delayed [Recovering/Resolving]
  - Neck pain [Not Recovered/Not Resolved]
  - Inappropriate schedule of drug administration [Unknown]
  - Lymphadenopathy [Unknown]
  - Drug ineffective [Unknown]
  - Infection [Recovered/Resolved]
  - Injection site pain [Unknown]
  - Headache [Not Recovered/Not Resolved]
  - Joint stiffness [Unknown]
  - Oedema peripheral [Recovered/Resolved]
  - Condition aggravated [Not Recovered/Not Resolved]

NARRATIVE: CASE EVENT DATE: 201403
